FAERS Safety Report 4805879-7 (Version None)
Quarter: 2005Q4

REPORT INFORMATION
  Report Type: 
  Country: None (occurrence: None)
  Receive Date: 20051018
  Receipt Date: 20051018
  Transmission Date: 20060501
  Serious: Yes (Other)
  Sender: FDA-Public Use
  Company Number: None

PATIENT
  Age: 33 Year
  Sex: Male

DRUGS (2)
  1. CLEOCIN [Suspect]
     Indication: ANTIBIOTIC PROPHYLAXIS
     Dosage: 600 MG E8HR IV
     Route: 042
     Dates: start: 20051004, end: 20051004
  2. CLEOCIN [Suspect]
     Indication: LIMB OPERATION
     Dosage: 600 MG E8HR IV
     Route: 042
     Dates: start: 20051004, end: 20051004

REACTIONS (3)
  - CHEST PAIN [None]
  - DYSGEUSIA [None]
  - ERYTHEMA [None]
